FAERS Safety Report 13792211 (Version 1)
Quarter: 2017Q3

REPORT INFORMATION
  Report Type: Spontaneous
  Country: US (occurrence: US)
  Receive Date: 20170725
  Receipt Date: 20170725
  Transmission Date: 20171127
  Serious: Yes (Other)
  Sender: FDA-Public Use
  Company Number: US-ROCHE-774270

PATIENT
  Age: 42 Year
  Sex: Male
  Weight: 90.7 kg

DRUGS (1)
  1. KETOROLAC [Suspect]
     Active Substance: KETOROLAC\KETOROLAC TROMETHAMINE
     Indication: PROCEDURAL PAIN
     Dosage: TAKEN ONCE
     Route: 065

REACTIONS (3)
  - Back pain [Not Recovered/Not Resolved]
  - Extradural haematoma [Recovered/Resolved]
  - Joint range of motion decreased [Recovered/Resolved]

NARRATIVE: CASE EVENT DATE: 2008
